FAERS Safety Report 11878967 (Version 1)
Quarter: 2015Q4

REPORT INFORMATION
  Report Type: Spontaneous
  Country: GB (occurrence: GB)
  Receive Date: 20151230
  Receipt Date: 20151230
  Transmission Date: 20160305
  Serious: Yes (Other)
  Sender: FDA-Public Use
  Company Number: PHFR2015GB009645

PATIENT
  Sex: Male

DRUGS (2)
  1. ZOMETA [Suspect]
     Active Substance: ZOLEDRONIC ACID
     Indication: PRODUCT USED FOR UNKNOWN INDICATION
     Route: 065
  2. VELCADE [Suspect]
     Active Substance: BORTEZOMIB
     Indication: PRODUCT USED FOR UNKNOWN INDICATION
     Route: 058

REACTIONS (9)
  - Back pain [Unknown]
  - Neuropathy peripheral [Recovering/Resolving]
  - Pain in extremity [Unknown]
  - Sciatica [Unknown]
  - Insomnia [Unknown]
  - Dysgeusia [Unknown]
  - Eye discharge [Recovering/Resolving]
  - Fatigue [Unknown]
  - Eye pain [Recovering/Resolving]
